FAERS Safety Report 4434747-8 (Version None)
Quarter: 2004Q3

REPORT INFORMATION
  Report Type: 
  Country: None (occurrence: None)
  Receive Date: 20040827
  Receipt Date: 20040712
  Transmission Date: 20050211
  Serious: No
  Sender: FDA-Public Use
  Company Number: US-BRISTOL-MYERS SQUIBB COMPANY-12639159

PATIENT
  Sex: Male

DRUGS (1)
  1. DEFINITY [Suspect]
     Dosage: 1 VIAL DILUTED IN 10CC NS
     Dates: start: 20040419, end: 20040419

REACTIONS (1)
  - BACK PAIN [None]
